FAERS Safety Report 21715629 (Version 1)
Quarter: 2022Q4

REPORT INFORMATION
  Report Type: Spontaneous
  Country: US (occurrence: None)
  Receive Date: 20221211
  Receipt Date: 20221211
  Transmission Date: 20230113
  Serious: No
  Sender: FDA-Public Use
  Company Number: None

PATIENT
  Age: 35 Year
  Sex: Female
  Weight: 81 kg

DRUGS (10)
  1. XYWAV [Suspect]
     Active Substance: CALCIUM OXYBATE\MAGNESIUM OXYBATE\POTASSIUM OXYBATE\SODIUM OXYBATE
     Indication: Narcolepsy
     Dosage: OTHER QUANTITY : 4.5 GRAMS;?OTHER FREQUENCY : TWICE NIGHTLY;?
     Route: 048
     Dates: start: 20221116
  2. CLOMIPRAMINE [Concomitant]
     Active Substance: CLOMIPRAMINE
  3. LEVOTHYROXINE [Concomitant]
     Active Substance: LEVOTHYROXINE
  4. MIRENA [Concomitant]
     Active Substance: LEVONORGESTREL
  5. CLARITIN [Concomitant]
     Active Substance: LORATADINE
  6. COLACE [Concomitant]
     Active Substance: DOCUSATE SODIUM
  7. LINZESS [Concomitant]
     Active Substance: LINACLOTIDE
  8. resmed airsense 10 [Concomitant]
  9. VITAMIN D NOS [Concomitant]
     Active Substance: VITAMIN D NOS
  10. XYWAV [Suspect]
     Active Substance: CALCIUM OXYBATE\MAGNESIUM OXYBATE\POTASSIUM OXYBATE\SODIUM OXYBATE
     Indication: Cataplexy

REACTIONS (5)
  - Fall [None]
  - Injury [None]
  - Anal incontinence [None]
  - Product taste abnormal [None]
  - Product complaint [None]

NARRATIVE: CASE EVENT DATE: 20221116
